FAERS Safety Report 25447994 (Version 1)
Quarter: 2025Q2

REPORT INFORMATION
  Report Type: Spontaneous
  Country: US (occurrence: US)
  Receive Date: 20250617
  Receipt Date: 20250617
  Transmission Date: 20250716
  Serious: No
  Sender: MERCK SHARP & DOHME LLC
  Company Number: US-009507513-2296178

PATIENT
  Age: 65 Year
  Sex: Female

DRUGS (10)
  1. CEFTOLOZANE SULFATE\TAZOBACTAM SODIUM [Suspect]
     Active Substance: CEFTOLOZANE SULFATE\TAZOBACTAM SODIUM
     Indication: Pyoderma gangrenosum
     Dosage: 3G/ EVERY 8 HOURS
     Route: 042
     Dates: start: 202505
  2. OXYCONTIN [Concomitant]
     Active Substance: OXYCODONE HYDROCHLORIDE
  3. PERCOCET [Concomitant]
     Active Substance: ACETAMINOPHEN\OXYCODONE HYDROCHLORIDE
  4. MELOXICAM [Concomitant]
     Active Substance: MELOXICAM
  5. FOLIC ACID [Concomitant]
     Active Substance: FOLIC ACID
  6. FUROSEMIDE [Concomitant]
     Active Substance: FUROSEMIDE
  7. POTASSIUM [Concomitant]
     Active Substance: POTASSIUM
  8. ARMOUR THYROID [Concomitant]
     Active Substance: THYROID, PORCINE
  9. PROGESTERONE [Concomitant]
     Active Substance: PROGESTERONE
  10. vitamin d 50000 units every other day [Concomitant]

REACTIONS (4)
  - Drug ineffective for unapproved indication [Unknown]
  - No adverse event [Unknown]
  - Wrong technique in product usage process [Unknown]
  - Product use in unapproved indication [Unknown]

NARRATIVE: CASE EVENT DATE: 20250501
